FAERS Safety Report 7677874-4 (Version None)
Quarter: 2011Q3

REPORT INFORMATION
  Report Type: 
  Country: None (occurrence: None)
  Receive Date: 20110811
  Receipt Date: 20110808
  Transmission Date: 20111222
  Serious: No
  Sender: FDA-Public Use
  Company Number: JP-MERCK-1107USA04022

PATIENT
  Age: 71 Year
  Sex: Male
  Weight: 67 kg

DRUGS (11)
  1. CILOSTATE [Concomitant]
     Route: 048
  2. ALINAMIN F (FURSULTIAMINE HYDROCHLORIDE) [Concomitant]
     Route: 065
  3. CRESTOR [Concomitant]
     Route: 048
  4. MINIPLANOR [Concomitant]
     Route: 048
  5. STANZOME [Concomitant]
     Route: 048
  6. ACTOS [Concomitant]
     Route: 048
  7. JANUVIA [Suspect]
     Indication: BLOOD GLUCOSE ABNORMAL
     Route: 048
     Dates: start: 20100202, end: 20110709
  8. AMLODIPINE [Concomitant]
     Route: 048
  9. GLIMEPIRIDE [Concomitant]
     Route: 048
  10. CARNACULIN [Concomitant]
     Route: 048
  11. METHYCOBAL [Concomitant]
     Route: 065

REACTIONS (1)
  - INTERSTITIAL LUNG DISEASE [None]
